FAERS Safety Report 5208700-0 (Version None)
Quarter: 2007Q1

REPORT INFORMATION
  Report Type: 
  Country: None (occurrence: None)
  Receive Date: 20070116
  Receipt Date: 20070105
  Transmission Date: 20070707
  Serious: Yes (Other)
  Sender: FDA-Public Use
  Company Number: PHEH2006US01291

PATIENT
  Age: 52 Year
  Sex: Female
  Weight: 99.773 kg

DRUGS (12)
  1. FARESTON [Concomitant]
  2. COUMADIN [Concomitant]
  3. VITAMIN CAP [Concomitant]
  4. CALCIUM CARBONATE [Concomitant]
  5. MAGNESIUM CARBONATE [Concomitant]
  6. FOLIC ACID [Concomitant]
  7. ASPIRIN [Concomitant]
  8. AREDIA [Suspect]
  9. ZOMETA [Suspect]
     Dosage: UNK, QMO
     Route: 042
     Dates: end: 20040301
  10. FEMARA [Concomitant]
  11. PROZAC [Concomitant]
  12. TAMOXIFEN CITRATE [Suspect]

REACTIONS (37)
  - ABDOMINAL PAIN [None]
  - ABDOMINAL PAIN UPPER [None]
  - BACK PAIN [None]
  - BONE DISORDER [None]
  - BONE TRIMMING [None]
  - CHOLELITHIASIS [None]
  - COMPUTERISED TOMOGRAM ABNORMAL [None]
  - COUGH [None]
  - DYSGEUSIA [None]
  - DYSPHAGIA [None]
  - FISTULA [None]
  - GINGIVAL BLEEDING [None]
  - HEPATIC CYST [None]
  - HYPERBARIC OXYGEN THERAPY [None]
  - IMPAIRED HEALING [None]
  - INFLAMMATION [None]
  - NASAL CONGESTION [None]
  - NECROSIS [None]
  - ORAL SOFT TISSUE DISORDER [None]
  - OSTEOMYELITIS [None]
  - OSTEONECROSIS [None]
  - POSTNASAL DRIP [None]
  - PRIMARY SEQUESTRUM [None]
  - PURULENCE [None]
  - RENAL CYST [None]
  - SENSITIVITY OF TEETH [None]
  - SEQUESTRECTOMY [None]
  - SINUS DISORDER [None]
  - SINUS OPERATION [None]
  - SINUS POLYP DEGENERATION [None]
  - SINUSITIS [None]
  - SWELLING FACE [None]
  - TENDERNESS [None]
  - TOOTH DISORDER [None]
  - TOOTH EXTRACTION [None]
  - TOOTH INFECTION [None]
  - WOUND DEBRIDEMENT [None]
